FAERS Safety Report 8653245 (Version 2)
Quarter: 2013Q3

REPORT INFORMATION
  Report Type: Spontaneous
  Country: DK (occurrence: DK)
  Receive Date: 20120706
  Receipt Date: 20130802
  Transmission Date: 20140515
  Serious: Yes (Hospitalization)
  Sender: FDA-Public Use
  Company Number: DK-PFIZER INC-2012157604

PATIENT
  Age: 48 Year
  Sex: Female
  Weight: 56 kg

DRUGS (1)
  1. SALAZOPYRIN [Suspect]
     Indication: OSTEOARTHRITIS
     Dosage: ^INCREASING TO 500 MG 2 X2, STRENGTH: 500 MG^
     Route: 048
     Dates: start: 20120118, end: 20120217

REACTIONS (6)
  - Rash generalised [Recovered/Resolved with Sequelae]
  - Hepatic function abnormal [Recovered/Resolved with Sequelae]
  - Lymphadenitis [Recovered/Resolved with Sequelae]
  - Malaise [Unknown]
  - Body temperature increased [Unknown]
  - Skin fissures [Unknown]
